FAERS Safety Report 19731595 (Version 1)
Quarter: 2021Q3

REPORT INFORMATION
  Report Type: Spontaneous
  Country: CN (occurrence: CN)
  Receive Date: 20210820
  Receipt Date: 20210820
  Transmission Date: 20211014
  Serious: Yes (Hospitalization)
  Sender: FDA-Public Use
  Company Number: CN-SA-2021SA274441

PATIENT
  Age: 74 Year
  Sex: Male
  Weight: 52 kg

DRUGS (12)
  1. HARNAL [Suspect]
     Active Substance: TAMSULOSIN HYDROCHLORIDE
     Indication: BENIGN PROSTATIC HYPERPLASIA
     Dosage: 0.2 MG, ONCE DAILY
     Route: 048
     Dates: start: 20210710, end: 20210727
  2. ATORVASTATIN CALCIUM. [Suspect]
     Active Substance: ATORVASTATIN CALCIUM
     Indication: LIPIDS INCREASED
  3. CELECOXIB. [Suspect]
     Active Substance: CELECOXIB
     Indication: ANTIINFLAMMATORY THERAPY
  4. CELECOXIB. [Suspect]
     Active Substance: CELECOXIB
     Indication: ANALGESIC THERAPY
  5. ASPIRINE [Concomitant]
     Active Substance: ASPIRIN
     Dosage: UNK
     Route: 065
  6. DALTEPARIN SODIUM [Concomitant]
     Active Substance: DALTEPARIN SODIUM
     Dosage: UNK
  7. ACARBOSE. [Concomitant]
     Active Substance: ACARBOSE
     Dosage: UNK
     Route: 065
     Dates: start: 20210707, end: 20210727
  8. CELECOXIB. [Suspect]
     Active Substance: CELECOXIB
     Indication: RIB FRACTURE
     Dosage: 0.2 G, ONCE DAILY
     Route: 048
     Dates: start: 20210713, end: 20210727
  9. CIMETIDINE [Suspect]
     Active Substance: CIMETIDINE
     Indication: RIB FRACTURE
     Dosage: 0.8 G, ONCE DAILY
     Route: 041
     Dates: start: 20210707, end: 20210727
  10. ATORVASTATIN CALCIUM. [Suspect]
     Active Substance: ATORVASTATIN CALCIUM
     Indication: CEREBRAL INFARCTION
     Dosage: 40 MG, QD (40 MG, ONCE DAILY (QN))
     Route: 048
     Dates: start: 20210709, end: 20210727
  11. TELMISARTAN. [Concomitant]
     Active Substance: TELMISARTAN
     Dosage: UNK
     Route: 065
  12. CIMETIDINE [Suspect]
     Active Substance: CIMETIDINE
     Indication: GASTROINTESTINAL DISORDER PROPHYLAXIS

REACTIONS (1)
  - Liver function test abnormal [Unknown]

NARRATIVE: CASE EVENT DATE: 20210720
